FAERS Safety Report 5224261-4 (Version None)
Quarter: 2007Q1

REPORT INFORMATION
  Report Type: 
  Country: None (occurrence: None)
  Receive Date: 20070126
  Receipt Date: 20070109
  Transmission Date: 20070707
  Serious: Yes (Hospitalization)
  Sender: FDA-Public Use
  Company Number: 2007P1000035

PATIENT
  Age: 61 Year
  Sex: Male

DRUGS (1)
  1. NICARDIPINE HYDROCHLORIDE [Suspect]
     Indication: HYPERTENSION
     Dosage: 360 MG; IV
     Route: 042
     Dates: start: 20060226, end: 20060314

REACTIONS (4)
  - CEREBRAL INFARCTION [None]
  - RENAL IMPAIRMENT [None]
  - RESPIRATORY FAILURE [None]
  - RESTLESSNESS [None]
